FAERS Safety Report 6373050-6 (Version None)
Quarter: 2009Q3

REPORT INFORMATION
  Report Type: 
  Country: None (occurrence: None)
  Receive Date: 20090924
  Receipt Date: 20090623
  Transmission Date: 20100115
  Serious: No
  Sender: FDA-Public Use
  Company Number: US-ASTRAZENECA-2009UW03523

PATIENT
  Age: 725 Month
  Sex: Female

DRUGS (4)
  1. SEROQUEL [Suspect]
     Indication: DEPRESSION
     Dosage: 25 TO 300 MG
     Route: 048
     Dates: start: 20030116
  2. CYCLOBENZAPRINE [Concomitant]
     Dates: start: 20070301, end: 20080101
  3. TRAZODONE HCL [Concomitant]
     Dosage: 50 TO 100 MG
  4. DEPAKOTE [Concomitant]
     Dosage: 250 TO 500 MG
     Dates: start: 20030116, end: 20070205

REACTIONS (1)
  - DIABETES MELLITUS [None]
